FAERS Safety Report 8894008 (Version 1)
Quarter: 2012Q4

REPORT INFORMATION
  Report Type: 
  Country: US (occurrence: US)
  Receive Date: 20121107
  Receipt Date: 20121107
  Transmission Date: 20130627
  Serious: Yes (Other)
  Sender: FDA-Public Use
  Company Number: US-AMGEN-USASP2011061899

PATIENT
  Age: 50 Year
  Sex: Female
  Weight: 111.11 kg

DRUGS (5)
  1. ENBREL [Suspect]
     Indication: PRODUCT USED FOR UNKNOWN INDICATION
     Dosage: 50 mg, qwk
     Route: 058
  2. ECOTRIN [Concomitant]
     Dosage: 325 mg, UNK
     Route: 048
  3. TRIAMTERENE/HCTZ [Concomitant]
     Route: 048
  4. FISH OIL [Concomitant]
     Dosage: 1000 mg, UNK
     Route: 048
  5. MULTIVITAMIN                       /00097801/ [Concomitant]
     Route: 048

REACTIONS (1)
  - Paraesthesia [Unknown]
